FAERS Safety Report 20959550 (Version 3)
Quarter: 2023Q4

REPORT INFORMATION
  Report Type: Report from Study
  Country: CA (occurrence: CA)
  Receive Date: 20220614
  Receipt Date: 20231117
  Transmission Date: 20240109
  Serious: Yes (Hospitalization, Other)
  Sender: FDA-Public Use
  Company Number: CA-HLS-202201138

PATIENT
  Age: 67 Year
  Sex: Female

DRUGS (16)
  1. CLOZARIL [Suspect]
     Active Substance: CLOZAPINE
     Indication: Product used for unknown indication
     Dosage: AT BEDTIME
     Route: 048
     Dates: start: 20010130
  2. ARIPIPRAZOLE [Concomitant]
     Active Substance: ARIPIPRAZOLE
     Indication: Depressed mood
     Route: 065
     Dates: start: 2011
  3. Atropine drops [Concomitant]
     Indication: Salivary hypersecretion
     Route: 065
  4. BUPROPION [Concomitant]
     Active Substance: BUPROPION
     Indication: Product used for unknown indication
     Route: 065
  5. NADOLOL [Concomitant]
     Active Substance: NADOLOL
     Indication: Product used for unknown indication
     Dosage: AT BEDTIME
     Route: 065
     Dates: end: 20220513
  6. FERROUS GLUCONATE [Concomitant]
     Active Substance: FERROUS GLUCONATE
     Indication: Product used for unknown indication
     Route: 065
  7. VITAMIN B12 [Concomitant]
     Active Substance: CYANOCOBALAMIN
     Indication: Product used for unknown indication
     Route: 065
  8. VITAMIN D3 [Concomitant]
     Active Substance: CHOLECALCIFEROL
     Indication: Product used for unknown indication
     Route: 065
  9. PANTOPRAZOLE [Concomitant]
     Active Substance: PANTOPRAZOLE
     Indication: Product used for unknown indication
     Route: 065
  10. ATORVASTATIN [Concomitant]
     Active Substance: ATORVASTATIN
     Indication: Product used for unknown indication
     Route: 065
  11. LANTUS [Concomitant]
     Active Substance: INSULIN GLARGINE
     Indication: Product used for unknown indication
     Dosage: WEEKLY
     Route: 058
  12. METFORMIN [Concomitant]
     Active Substance: METFORMIN HYDROCHLORIDE
     Indication: Product used for unknown indication
     Route: 065
  13. OZEMPIC [Concomitant]
     Active Substance: SEMAGLUTIDE
     Indication: Product used for unknown indication
     Route: 065
  14. ESCITALOPRAM [Concomitant]
     Active Substance: ESCITALOPRAM OXALATE
     Indication: Product used for unknown indication
     Route: 065
     Dates: start: 2014
  15. TOPAMAX [Concomitant]
     Active Substance: TOPIRAMATE
     Indication: Weight decreased
     Route: 065
     Dates: start: 2009
  16. METOPROLOL [Concomitant]
     Active Substance: METOPROLOL
     Indication: Tachycardia
     Dosage: 25 MG TWICE DAILY
     Route: 065

REACTIONS (13)
  - Hallucination, auditory [Unknown]
  - Barrett^s oesophagus [Unknown]
  - Diabetes mellitus [Unknown]
  - Hypotension [Unknown]
  - Bundle branch block left [Unknown]
  - Dizziness [Unknown]
  - Depressed mood [Unknown]
  - Malaise [Unknown]
  - Obstructive sleep apnoea syndrome [Unknown]
  - Orthostatic hypotension [Unknown]
  - Depressive symptom [Unknown]
  - Psychotic symptom [Unknown]
  - Tachycardia [Unknown]

NARRATIVE: CASE EVENT DATE: 20220525
